FAERS Safety Report 5146904-6 (Version None)
Quarter: 2006Q4

REPORT INFORMATION
  Report Type: 
  Country: None (occurrence: None)
  Receive Date: 20061108
  Receipt Date: 20061108
  Transmission Date: 20070319
  Serious: Yes (Life-Threatening, Hospitalization)
  Sender: FDA-Public Use
  Company Number: None

PATIENT
  Age: 20 Year
  Sex: Female
  Weight: 54.4316 kg

DRUGS (1)
  1. ABILIFY [Suspect]
     Indication: BIPOLAR II DISORDER
     Dosage: 15 MG   DAILY    PO
     Route: 048
     Dates: start: 20060301, end: 20061029

REACTIONS (8)
  - CONFUSIONAL STATE [None]
  - DEPRESSION [None]
  - DEPRESSIVE SYMPTOM [None]
  - MENTAL DISORDER [None]
  - OVERDOSE [None]
  - SOMNOLENCE [None]
  - SUICIDE ATTEMPT [None]
  - THINKING ABNORMAL [None]
